FAERS Safety Report 6210967-7 (Version None)
Quarter: 2009Q2

REPORT INFORMATION
  Report Type: 
  Country: None (occurrence: None)
  Receive Date: 20090528
  Receipt Date: 20090528
  Transmission Date: 20091009
  Serious: Yes (Hospitalization, Other)
  Sender: FDA-Public Use
  Company Number: None

PATIENT
  Age: 19 Year
  Sex: Female
  Weight: 85.7298 kg

DRUGS (2)
  1. REGLAN [Suspect]
     Indication: MIGRAINE
     Dosage: 10 MG ONCE IV BOLUS
     Route: 040
     Dates: start: 20090527, end: 20090527
  2. REGLAN [Concomitant]

REACTIONS (6)
  - AGGRESSION [None]
  - AGITATION [None]
  - CONDITION AGGRAVATED [None]
  - DRUG HYPERSENSITIVITY [None]
  - MIGRAINE [None]
  - MUSCLE DISORDER [None]
